FAERS Safety Report 5903685-3 (Version None)
Quarter: 2008Q3

REPORT INFORMATION
  Report Type: 
  Country: None (occurrence: None)
  Receive Date: 20080930
  Receipt Date: 20080911
  Transmission Date: 20090109
  Serious: No
  Sender: FDA-Public Use
  Company Number: US-B.I. PHARMACEUTICALS,INC./RIDGEFIELD-2008-BP-12990BP

PATIENT
  Sex: Female

DRUGS (15)
  1. ZANTAC 150 [Suspect]
     Indication: GASTROOESOPHAGEAL REFLUX DISEASE
     Route: 048
     Dates: start: 20080801
  2. ROZEREM [Suspect]
     Dates: start: 20080111, end: 20080820
  3. LYRICA [Suspect]
     Indication: PAIN
     Dosage: 75MG
     Route: 048
     Dates: start: 20080806, end: 20080814
  4. LYRICA [Suspect]
     Indication: ARTHRITIS
  5. LYRICA [Suspect]
     Indication: NEUROPATHY PERIPHERAL
  6. CORGARD [Concomitant]
     Dosage: 40MG
     Route: 048
  7. PAMELOR [Concomitant]
     Dosage: 100MG
     Route: 048
  8. LUTEIN W/KALE [Concomitant]
  9. NATURALE [Concomitant]
     Indication: SKIN DISORDER
  10. NATURALE [Concomitant]
     Indication: HAIR DISORDER
  11. NATURALE [Concomitant]
     Indication: NAIL DISORDER
  12. DOXYCYCLINE [Concomitant]
     Indication: ANIMAL BITE
     Dates: start: 20080801
  13. DOXYCYCLINE [Concomitant]
     Indication: INFECTION
  14. VITAMINS [Concomitant]
     Indication: HAIR DISORDER
  15. VITAMINS [Concomitant]
     Indication: SKIN DISORDER

REACTIONS (1)
  - DIZZINESS [None]
